FAERS Safety Report 6284024-8 (Version None)
Quarter: 2009Q3

REPORT INFORMATION
  Report Type: 
  Country: None (occurrence: None)
  Receive Date: 20090727
  Receipt Date: 20090716
  Transmission Date: 20100115
  Serious: Yes (Hospitalization)
  Sender: FDA-Public Use
  Company Number: US-BIOGENIDEC-144401

PATIENT
  Age: 51 Year
  Sex: Female
  Weight: 68 kg

DRUGS (4)
  1. AVONEX [Suspect]
     Indication: MULTIPLE SCLEROSIS
     Route: 030
     Dates: start: 20001107, end: 20001101
  2. AVONEX [Suspect]
     Route: 030
     Dates: start: 20001101, end: 20001101
  3. AVONEX [Suspect]
     Route: 030
     Dates: start: 20001101, end: 20001201
  4. AVONEX [Suspect]
     Route: 030
     Dates: start: 20001201, end: 20040707

REACTIONS (2)
  - FALL [None]
  - MULTIPLE SCLEROSIS RELAPSE [None]
